FAERS Safety Report 5112994-X (Version None)
Quarter: 2006Q3

REPORT INFORMATION
  Report Type: 
  Country: None (occurrence: None)
  Receive Date: 20060920
  Receipt Date: 20060907
  Transmission Date: 20061208
  Serious: Yes (Hospitalization)
  Sender: FDA-Public Use
  Company Number: 2006PV018940

PATIENT
  Age: 73 Year
  Sex: Male
  Weight: 81.6475 kg

DRUGS (6)
  1. BYETTA [Suspect]
     Indication: DIABETES MELLITUS NON-INSULIN-DEPENDENT
     Dosage: SEE IMAGE
     Route: 058
     Dates: start: 20060601, end: 20060701
  2. BYETTA [Suspect]
     Indication: DIABETES MELLITUS NON-INSULIN-DEPENDENT
     Dosage: SEE IMAGE
     Route: 058
     Dates: start: 20060701
  3. BYETTA [Suspect]
  4. GLUCOPHAGE [Concomitant]
  5. ACTOS [Concomitant]
  6. CHEMOTHERAPY [Concomitant]

REACTIONS (9)
  - DIZZINESS [None]
  - FATIGUE [None]
  - FOOD AVERSION [None]
  - FOOD INTOLERANCE [None]
  - INJECTION SITE BRUISING [None]
  - INJECTION SITE MASS [None]
  - NAUSEA [None]
  - PNEUMONIA [None]
  - WEIGHT FLUCTUATION [None]
